FAERS Safety Report 14120865 (Version 1)
Quarter: 2017Q4

REPORT INFORMATION
  Report Type: Spontaneous
  Country: US (occurrence: US)
  Receive Date: 20171024
  Receipt Date: 20171024
  Transmission Date: 20180321
  Serious: No
  Sender: FDA-Public Use
  Company Number: US-PERRIGO-16US020692

PATIENT
  Age: 68 Year
  Sex: Male
  Weight: 110.66 kg

DRUGS (3)
  1. KIONEX [Suspect]
     Active Substance: SODIUM POLYSTYRENE SULFONATE
     Indication: BLOOD POTASSIUM INCREASED
     Dosage: TWO BOTTLES, WEEKLY
     Route: 048
     Dates: start: 2015
  2. INSULIN [Concomitant]
     Active Substance: INSULIN NOS
     Indication: DIABETES MELLITUS
     Dosage: UNK
     Route: 065
  3. KIONEX [Suspect]
     Active Substance: SODIUM POLYSTYRENE SULFONATE
     Dosage: UNKNOWN AMOUNT, SINGLE
     Route: 048
     Dates: start: 20160921, end: 20160921

REACTIONS (2)
  - Exposure to unspecified agent [Recovered/Resolved]
  - Diarrhoea [Recovered/Resolved]

NARRATIVE: CASE EVENT DATE: 20160921
